FAERS Safety Report 14395564 (Version 1)
Quarter: 2018Q1

REPORT INFORMATION
  Report Type: Spontaneous
  Country: US (occurrence: US)
  Receive Date: 20180116
  Receipt Date: 20180116
  Transmission Date: 20180509
  Serious: No
  Sender: FDA-Public Use
  Company Number: US-ALLERGAN-1711571US

PATIENT
  Sex: Female

DRUGS (2)
  1. ADVIL MIGRAINE [Concomitant]
     Active Substance: IBUPROFEN
     Indication: MIGRAINE
     Route: 065
  2. BOTOX [Suspect]
     Active Substance: ONABOTULINUMTOXINA
     Indication: MIGRAINE
     Dosage: UNK, SINGLE
     Route: 030

REACTIONS (1)
  - Drug ineffective [Unknown]
